FAERS Safety Report 17997301 (Version 1)
Quarter: 2020Q3

REPORT INFORMATION
  Report Type: Spontaneous
  Country: IT (occurrence: IT)
  Receive Date: 20200708
  Receipt Date: 20200708
  Transmission Date: 20201103
  Serious: Yes (Life-Threatening)
  Sender: FDA-Public Use
  Company Number: IT-BRACCO-2020IT02771

PATIENT
  Age: 51 Year
  Sex: Female

DRUGS (1)
  1. IOPAMIRO [Suspect]
     Active Substance: IOPAMIDOL
     Indication: ANGIOGRAM
     Dosage: 50 ML, SINGLE
     Route: 040

REACTIONS (1)
  - Laryngospasm [Recovering/Resolving]

NARRATIVE: CASE EVENT DATE: 20200615
